FAERS Safety Report 20048700 (Version 1)
Quarter: 2021Q4

REPORT INFORMATION
  Report Type: Report from Study
  Country: IT (occurrence: IT)
  Receive Date: 20211109
  Receipt Date: 20211109
  Transmission Date: 20220303
  Serious: Yes (Other)
  Sender: FDA-Public Use
  Company Number: IT-NOVARTISPH-NVSC2020IT341998

PATIENT
  Age: 69 Year
  Sex: Male
  Weight: 78 kg

DRUGS (19)
  1. NAPORAFENIB [Suspect]
     Active Substance: NAPORAFENIB
     Indication: Malignant melanoma
     Dosage: 400 MG, BID
     Route: 048
     Dates: start: 20201117, end: 20201117
  2. NAPORAFENIB [Suspect]
     Active Substance: NAPORAFENIB
     Dosage: 400 MG, BID
     Route: 048
     Dates: start: 20201119, end: 20201214
  3. NAPORAFENIB [Suspect]
     Active Substance: NAPORAFENIB
     Dosage: 200 MG, BID
     Route: 048
     Dates: start: 20201215, end: 20201216
  4. NAPORAFENIB [Suspect]
     Active Substance: NAPORAFENIB
     Dosage: 100 MG, BID
     Route: 048
     Dates: start: 20201217, end: 20201218
  5. NAPORAFENIB [Suspect]
     Active Substance: NAPORAFENIB
     Dosage: 100 MG, BID
     Route: 048
     Dates: start: 20201219, end: 20201220
  6. NAPORAFENIB [Suspect]
     Active Substance: NAPORAFENIB
     Dosage: 200 MG, BID
     Route: 048
     Dates: start: 20210113, end: 20210126
  7. NAPORAFENIB [Suspect]
     Active Substance: NAPORAFENIB
     Dosage: 200 MG, BID
     Route: 048
     Dates: start: 20210127, end: 20210128
  8. NAPORAFENIB [Suspect]
     Active Substance: NAPORAFENIB
     Dosage: 100 MG, BID
     Route: 048
     Dates: start: 20210129, end: 20210130
  9. NAPORAFENIB [Suspect]
     Active Substance: NAPORAFENIB
     Dosage: 100 MG, BID
     Route: 048
     Dates: start: 20210131, end: 20210131
  10. RIBOCICLIB [Suspect]
     Active Substance: RIBOCICLIB
     Indication: Malignant melanoma
     Dosage: 400 MG, OT (3 WEEKS ON, 1 WEEK OFF)
     Route: 048
     Dates: start: 20201117, end: 20201117
  11. RIBOCICLIB [Suspect]
     Active Substance: RIBOCICLIB
     Dosage: 400 MG, OT (3 WEEKS ON, 1 WEEK OFF)
     Route: 048
     Dates: start: 20201119, end: 20201214
  12. RIBOCICLIB [Suspect]
     Active Substance: RIBOCICLIB
     Dosage: 400 MG, OT (3 WEEKS ON, 1 WEEK OFF)
     Route: 048
     Dates: start: 20210113, end: 20210126
  13. ACETAMINOPHEN [Concomitant]
     Active Substance: ACETAMINOPHEN
     Indication: Pyrexia
     Dosage: 1000 MG, PO PRN
     Route: 065
     Dates: start: 20201219, end: 20201223
  14. AUGMENTIN [Concomitant]
     Active Substance: AMOXICILLIN\CLAVULANATE POTASSIUM
     Indication: Pyrexia
     Dosage: 1 TABLET, BID1 TABLET, BID1 TABLET, BID
     Route: 048
     Dates: start: 20201219, end: 20201224
  15. AUGMENTIN [Concomitant]
     Active Substance: AMOXICILLIN\CLAVULANATE POTASSIUM
     Indication: Soft tissue infection
     Dosage: UNK
     Route: 065
     Dates: start: 20210218, end: 20210223
  16. ASPIRIN [Concomitant]
     Active Substance: ASPIRIN
     Indication: Cardiovascular event prophylaxis
     Dosage: UNK
     Route: 065
     Dates: start: 2019
  17. DESOXIMETASONE [Concomitant]
     Active Substance: DESOXIMETASONE
     Indication: Rash
     Dosage: UNK
     Route: 065
     Dates: start: 20201201
  18. FAMOTIDINE [Concomitant]
     Active Substance: FAMOTIDINE
     Indication: Gastrointestinal disorder prophylaxis
     Dosage: UNK
     Route: 065
     Dates: start: 20201223
  19. DEURSIL [Concomitant]
     Active Substance: URSODIOL
     Indication: Blood bilirubin increased
     Dosage: UNK
     Route: 065
     Dates: start: 20210203, end: 20210301

REACTIONS (1)
  - Alanine aminotransferase increased [Recovering/Resolving]

NARRATIVE: CASE EVENT DATE: 20201222
